FAERS Safety Report 7265912-2 (Version None)
Quarter: 2011Q1

REPORT INFORMATION
  Report Type: 
  Country: None (occurrence: None)
  Receive Date: 20110131
  Receipt Date: 20110124
  Transmission Date: 20110831
  Serious: Yes (Death, Life-Threatening, Hospitalization)
  Sender: FDA-Public Use
  Company Number: B0696542A

PATIENT
  Sex: Male
  Weight: 57 kg

DRUGS (29)
  1. CYCLOSPORINE [Concomitant]
     Indication: IMMUNOSUPPRESSION
     Dosage: 160MG PER DAY
     Route: 065
     Dates: start: 20020130, end: 20020321
  2. TACROLIMUS [Concomitant]
     Indication: IMMUNOSUPPRESSION
     Dosage: .65MG PER DAY
     Route: 065
     Dates: start: 20020325, end: 20020607
  3. STROCAIN [Concomitant]
     Dosage: 15MG PER DAY
     Route: 048
     Dates: start: 20020201, end: 20020208
  4. ISCOTIN [Concomitant]
     Dosage: 300MG PER DAY
     Route: 048
     Dates: start: 20020124, end: 20020130
  5. ZOVIRAX [Concomitant]
     Dosage: 200MG PER DAY
     Route: 048
     Dates: start: 20020124, end: 20020130
  6. PANSPORIN [Concomitant]
     Dosage: 2G PER DAY
     Dates: start: 20020124, end: 20020126
  7. MEYLON [Concomitant]
     Dosage: 100ML PER DAY
     Route: 042
     Dates: start: 20020125, end: 20020128
  8. VENOGLOBULIN [Concomitant]
     Dosage: 10G PER DAY
     Route: 042
     Dates: start: 20020130, end: 20020510
  9. FOY [Concomitant]
     Dosage: 200MG PER DAY
     Route: 042
     Dates: start: 20020207, end: 20020219
  10. ALKERAN [Suspect]
     Indication: STEM CELL TRANSPLANT
     Dosage: 60MGM2 PER DAY
     Route: 042
     Dates: start: 20020125, end: 20020127
  11. GRAN [Concomitant]
     Dosage: 300MCG PER DAY
     Dates: start: 20020327, end: 20020523
  12. SOLU-MEDROL [Concomitant]
     Indication: IMMUNOSUPPRESSION
     Dosage: 56MG PER DAY
     Route: 042
     Dates: start: 20020222, end: 20020317
  13. MEROPENEM [Concomitant]
     Dosage: .5G PER DAY
     Route: 042
     Dates: start: 20020127, end: 20020208
  14. NEOLAMIN [Concomitant]
     Dosage: 1IUAX PER DAY
     Route: 042
     Dates: start: 20020131, end: 20020203
  15. VITAMEDIN [Concomitant]
     Dosage: 1IUAX PER DAY
     Route: 042
     Dates: start: 20020206, end: 20020208
  16. ELEMENMIC [Concomitant]
     Dosage: 2ML PER DAY
     Route: 042
     Dates: start: 20020131, end: 20020203
  17. GASTER [Concomitant]
     Dosage: 5MG PER DAY
     Route: 042
     Dates: start: 20020131, end: 20020208
  18. AZACTAM [Concomitant]
     Dosage: 1.5G PER DAY
     Dates: start: 20020201, end: 20020208
  19. PREDONINE [Concomitant]
     Indication: IMMUNOSUPPRESSION
     Dosage: 90MG PER DAY
     Route: 065
     Dates: start: 20020318, end: 20020519
  20. CELLCEPT [Concomitant]
     Indication: IMMUNOSUPPRESSION
     Dosage: 1000MG PER DAY
     Route: 048
     Dates: start: 20020317, end: 20020528
  21. FUNGIZONE [Concomitant]
     Dosage: 2400MG PER DAY
     Route: 048
     Dates: start: 20020124, end: 20020130
  22. GRAN [Concomitant]
     Dosage: 450MCG PER DAY
     Dates: start: 20020205, end: 20020212
  23. CRAVIT [Concomitant]
     Dosage: 100MG PER DAY
     Route: 048
     Dates: start: 20020124, end: 20020130
  24. URSO 250 [Concomitant]
     Dosage: 300MG PER DAY
     Route: 048
     Dates: start: 20020124, end: 20020210
  25. FUROSEMIDE [Concomitant]
     Dosage: 40MG PER DAY
     Route: 042
     Dates: start: 20020124, end: 20020204
  26. DIFLUCAN [Concomitant]
     Dosage: 100MG PER DAY
     Route: 042
     Dates: start: 20020131, end: 20020208
  27. MINOMYCIN [Concomitant]
     Dosage: 100MG PER DAY
     Route: 042
     Dates: start: 20020204, end: 20020208
  28. MORPHINE HYDROCHLORIDE [Concomitant]
     Dosage: 1ML PER DAY
     Route: 042
     Dates: start: 20020207, end: 20020316
  29. RAMELTEON [Concomitant]
     Dosage: .3MG PER DAY
     Route: 042
     Dates: start: 20020124, end: 20020126

REACTIONS (8)
  - GRAFT VERSUS HOST DISEASE [None]
  - CARDIAC FAILURE [None]
  - BLOOD CREATININE INCREASED [None]
  - DIARRHOEA [None]
  - RENAL IMPAIRMENT [None]
  - SYSTEMIC CANDIDA [None]
  - BLOOD UREA INCREASED [None]
  - INTERSTITIAL LUNG DISEASE [None]
